FAERS Safety Report 17395322 (Version 1)
Quarter: 2020Q1

REPORT INFORMATION
  Report Type: Spontaneous
  Country: US (occurrence: US)
  Receive Date: 20200210
  Receipt Date: 20200210
  Transmission Date: 20200409
  Serious: Yes (Other)
  Sender: FDA-Public Use
  Company Number: US-GLAXOSMITHKLINE-US2020020687

PATIENT
  Age: 53 Year
  Sex: Female

DRUGS (1)
  1. GAS-X EXTRA STRENGTH SOFTGELS [Suspect]
     Active Substance: DIMETHICONE
     Indication: ABDOMINAL DISTENSION
     Dosage: UNK
     Dates: start: 20190801, end: 20200204

REACTIONS (12)
  - Dizziness [Unknown]
  - Gastric disorder [Unknown]
  - Weight decreased [Unknown]
  - Hypersensitivity [Unknown]
  - Emergency care [Unknown]
  - Gastrointestinal pain [Unknown]
  - Foaming at mouth [Recovering/Resolving]
  - Feeling abnormal [Unknown]
  - Atrial fibrillation [Unknown]
  - General physical health deterioration [Unknown]
  - Abdominal discomfort [Unknown]
  - Sleep apnoea syndrome [Unknown]

NARRATIVE: CASE EVENT DATE: 20190901
